FAERS Safety Report 6871285-7 (Version None)
Quarter: 2010Q3

REPORT INFORMATION
  Report Type: 
  Country: None (occurrence: None)
  Receive Date: 20100723
  Receipt Date: 20100714
  Transmission Date: 20110219
  Serious: Yes (Hospitalization, Other)
  Sender: FDA-Public Use
  Company Number: US-PFIZER INC-2010082641

PATIENT
  Sex: Female
  Weight: 58 kg

DRUGS (10)
  1. CELEBREX [Suspect]
     Indication: SHOULDER OPERATION
     Dosage: 200 MG, 2X/DAY
     Route: 048
  2. CELEBREX [Suspect]
     Indication: OSTEOARTHRITIS
  3. CELEBREX [Suspect]
     Indication: ARTHRITIS
  4. ALLEGRA [Concomitant]
     Indication: HYPERSENSITIVITY
     Dosage: UNK
  5. RANITIDINE [Concomitant]
     Dosage: UNK
  6. PREVACID [Concomitant]
     Dosage: UNK
  7. ASPIRIN [Concomitant]
     Dosage: UNK
  8. LANSOPRAZOLE [Concomitant]
     Indication: GASTROINTESTINAL DISORDER
     Dosage: 30 MG, 2X/DAY
     Route: 048
  9. VITAMIN D3 [Concomitant]
     Dosage: 1000 IU, 1X/DAY
  10. RANITIDINE HYDROCHLORIDE [Concomitant]
     Indication: ABDOMINAL DISCOMFORT
     Dosage: 300 MG, 2X/DAY
     Route: 048

REACTIONS (21)
  - AMNESIA [None]
  - ARTHRALGIA [None]
  - BLOOD CHOLESTEROL [None]
  - BLOOD TRIGLYCERIDES [None]
  - BONE DISORDER [None]
  - CEREBROVASCULAR ACCIDENT [None]
  - DIARRHOEA [None]
  - DYSPHAGIA [None]
  - HEADACHE [None]
  - HEARING IMPAIRED [None]
  - HOT FLUSH [None]
  - HYPERTENSION [None]
  - PHARYNGEAL ERYTHEMA [None]
  - POLYDIPSIA [None]
  - PRURITUS [None]
  - PYREXIA [None]
  - SWOLLEN TONGUE [None]
  - SYNCOPE [None]
  - THROMBOSIS [None]
  - TRANSIENT ISCHAEMIC ATTACK [None]
  - TUNNEL VISION [None]
